FAERS Safety Report 13150147 (Version 2)
Quarter: 2017Q1

REPORT INFORMATION
  Report Type: Report from Study
  Country: US (occurrence: US)
  Receive Date: 20170125
  Receipt Date: 20170329
  Transmission Date: 20170428
  Serious: No
  Sender: FDA-Public Use
  Company Number: PHHY2016US032086

PATIENT
  Age: 38 Year
  Sex: Female

DRUGS (2)
  1. GILENYA [Suspect]
     Active Substance: FINGOLIMOD HYDROCHLORIDE
     Indication: MULTIPLE SCLEROSIS
     Dosage: UNK, QD
     Route: 048
  2. SOLU-MEDROL [Concomitant]
     Active Substance: METHYLPREDNISOLONE SODIUM SUCCINATE
     Indication: OPTIC NERVE DISORDER
     Dosage: UNK
     Route: 065
     Dates: start: 20120713, end: 20120715

REACTIONS (4)
  - Defaecation urgency [Recovered/Resolved]
  - Vitamin D decreased [Unknown]
  - Anal incontinence [Unknown]
  - Constipation [Unknown]

NARRATIVE: CASE EVENT DATE: 20150601
